FAERS Safety Report 13025516 (Version 3)
Quarter: 2017Q1

REPORT INFORMATION
  Report Type: Spontaneous
  Country: US (occurrence: US)
  Receive Date: 20161214
  Receipt Date: 20170209
  Transmission Date: 20170428
  Serious: Yes (Hospitalization, Other)
  Sender: FDA-Public Use
  Company Number: US-SHIRE-US201618423

PATIENT
  Age: 8 Year
  Sex: Male
  Weight: 43.54 kg

DRUGS (4)
  1. VYVANSE [Suspect]
     Active Substance: LISDEXAMFETAMINE DIMESYLATE
     Dosage: 10 MG, 1X/DAY:QD
     Route: 048
     Dates: start: 201509, end: 2015
  2. VYVANSE [Suspect]
     Active Substance: LISDEXAMFETAMINE DIMESYLATE
     Indication: ATTENTION DEFICIT/HYPERACTIVITY DISORDER
     Dosage: 40 MG, 1X/DAY:QD (TAKEN AS 30 MG IN MORNING AND 10 MG IN AFTERNOON)
     Route: 048
     Dates: start: 201512, end: 20160420
  3. VYVANSE [Suspect]
     Active Substance: LISDEXAMFETAMINE DIMESYLATE
     Dosage: 40 MG, 1X/DAY:QD
     Route: 048
     Dates: start: 20160420, end: 20160701
  4. VYVANSE [Suspect]
     Active Substance: LISDEXAMFETAMINE DIMESYLATE
     Dosage: 20 MG, 1X/DAY:QD
     Route: 048
     Dates: start: 201509, end: 2015

REACTIONS (10)
  - Agitation [Recovered/Resolved]
  - Mental status changes [Recovered/Resolved]
  - Product quality issue [Unknown]
  - Encephalopathy [Recovered/Resolved]
  - Antisocial behaviour [Recovered/Resolved]
  - Fall [Recovered/Resolved]
  - Conversion disorder [Recovered/Resolved]
  - Abnormal behaviour [Recovered/Resolved]
  - Adjustment disorder [Recovered/Resolved]
  - Inappropriate schedule of drug administration [Recovered/Resolved]

NARRATIVE: CASE EVENT DATE: 201512
